FAERS Safety Report 23900734 (Version 1)
Quarter: 2024Q2

REPORT INFORMATION
  Report Type: Spontaneous
  Country: US (occurrence: None)
  Receive Date: 20240526
  Receipt Date: 20240526
  Transmission Date: 20240716
  Serious: No
  Sender: FDA-Public Use
  Company Number: US-ROCHE-3346070

PATIENT
  Age: 23 Year
  Sex: Female
  Weight: 147.13 kg

DRUGS (1)
  1. OCREVUS [Suspect]
     Active Substance: OCRELIZUMAB
     Indication: Multiple sclerosis
     Dosage: 300MG DAY 1 AND DAY 15, THEN 600 MG EVERY 6 MONTHS
     Route: 042
     Dates: start: 20230504

REACTIONS (11)
  - Throat irritation [Recovered/Resolved]
  - Hypotension [Not Recovered/Not Resolved]
  - Headache [Recovered/Resolved]
  - Asthenia [Not Recovered/Not Resolved]
  - Palpitations [Recovered/Resolved]
  - Agitation [Unknown]
  - Fatigue [Unknown]
  - Ear pruritus [Recovered/Resolved]
  - Lip pruritus [Recovered/Resolved]
  - Hypoaesthesia oral [Not Recovered/Not Resolved]
  - Muscular weakness [Not Recovered/Not Resolved]

NARRATIVE: CASE EVENT DATE: 20230504
